FAERS Safety Report 7386076-0 (Version None)
Quarter: 2011Q1

REPORT INFORMATION
  Report Type: 
  Country: None (occurrence: None)
  Receive Date: 20110329
  Receipt Date: 20110329
  Transmission Date: 20110831
  Serious: Yes (Death)
  Sender: FDA-Public Use
  Company Number: None

PATIENT
  Sex: Female
  Weight: 49.8957 kg

DRUGS (1)
  1. CYMBALTA [Suspect]
     Indication: ANXIETY
     Dosage: 30MG BID P.O.
     Route: 048
     Dates: start: 20100419, end: 20100420

REACTIONS (3)
  - FEELING ABNORMAL [None]
  - COMPLETED SUICIDE [None]
  - DROWNING [None]
